FAERS Safety Report 15137022 (Version 1)
Quarter: 2018Q3

REPORT INFORMATION
  Report Type: Spontaneous
  Country: US (occurrence: US)
  Receive Date: 20180712
  Receipt Date: 20180712
  Transmission Date: 20181010
  Serious: Yes (Other)
  Sender: FDA-Public Use
  Company Number: US-FOUNDATIONCONSUMERHC-2018-US-008427

PATIENT
  Age: 30 Year
  Sex: Female
  Weight: 79.83 kg

DRUGS (1)
  1. PLAN B ONE?STEP [Suspect]
     Active Substance: LEVONORGESTREL
     Indication: POST COITAL CONTRACEPTION
     Dosage: 1 TAB PO
     Route: 048
     Dates: start: 20180411, end: 20180411

REACTIONS (6)
  - Pregnancy after post coital contraception [Unknown]
  - Ovarian cyst [Unknown]
  - Drug ineffective [Unknown]
  - Exposure during pregnancy [Recovered/Resolved]
  - Abdominal pain upper [Unknown]
  - Bacterial vaginosis [Unknown]

NARRATIVE: CASE EVENT DATE: 20180411
